FAERS Safety Report 7556798-7 (Version None)
Quarter: 2011Q2

REPORT INFORMATION
  Report Type: 
  Country: None (occurrence: None)
  Receive Date: 20110620
  Receipt Date: 20110613
  Transmission Date: 20111010
  Serious: Yes (Death, Hospitalization)
  Sender: FDA-Public Use
  Company Number: BR-US-EMD SERONO, INC.-7062874

PATIENT
  Sex: Male

DRUGS (1)
  1. REBIF [Suspect]
     Indication: SECONDARY PROGRESSIVE MULTIPLE SCLEROSIS
     Dates: start: 20080101

REACTIONS (7)
  - DIARRHOEA [None]
  - HYPOAESTHESIA [None]
  - PYREXIA [None]
  - CEREBROVASCULAR ACCIDENT [None]
  - HEADACHE [None]
  - URINARY INCONTINENCE [None]
  - DYSPNOEA [None]
